FAERS Safety Report 6266054-5 (Version None)
Quarter: 2009Q4

REPORT INFORMATION
  Report Type: 
  Country: None (occurrence: None)
  Receive Date: 20090709
  Receipt Date: 20090624
  Transmission Date: 20100525
  Serious: Yes (Hospitalization)
  Sender: FDA-Public Use
  Company Number: 1000007256

PATIENT
  Age: 31 Year
  Sex: Female

DRUGS (6)
  1. CITALOPRAM HYDROBROMIDE [Suspect]
     Dosage: 60 MG (60 MG, 1 IN 1 D), ORAL
     Route: 048
  2. SEROQUEL [Suspect]
     Dosage: 200 MG (200 MG, 1 IN 1 D),ORAL
     Route: 048
     Dates: start: 20090203, end: 20090213
  3. SEROQUEL [Suspect]
     Dosage: 300 MG (300 MG, 1 IN1 D), ORAL
     Route: 048
     Dates: start: 20090214, end: 20090226
  4. DIAZEPAM [Suspect]
     Dosage: 10 MG (10 MG, 1 IN 1 D), ORAL
     Route: 048
     Dates: start: 20090216, end: 20090324
  5. DIPIPERON [Suspect]
     Dosage: 20 MG (40 MG, 1  IN 2D), ORAL
     Route: 048
     Dates: start: 20090218, end: 20090226
  6. ANTABUSE [Concomitant]

REACTIONS (3)
  - ALCOHOL POISONING [None]
  - BLADDER DILATATION [None]
  - URINARY RETENTION [None]
